FAERS Safety Report 24402769 (Version 1)
Quarter: 2024Q4

REPORT INFORMATION
  Report Type: Spontaneous
  Country: GB (occurrence: GB)
  Receive Date: 20241007
  Receipt Date: 20241007
  Transmission Date: 20250114
  Serious: Yes (Hospitalization, Other)
  Sender: TEVA
  Company Number: GB-TAKEDA-2021TUS010890

PATIENT
  Age: 77 Year
  Sex: Female

DRUGS (7)
  1. RAMIPRIL [Suspect]
     Active Substance: RAMIPRIL
     Indication: Product used for unknown indication
     Dosage: UNK
     Route: 065
  2. ENTYVIO [Suspect]
     Active Substance: VEDOLIZUMAB
     Indication: Crohn^s disease
     Dosage: 300 MILLIGRAM
     Route: 042
     Dates: start: 20190930
  3. ENTYVIO [Suspect]
     Active Substance: VEDOLIZUMAB
     Indication: Crohn^s disease
     Dosage: 300 MILLIGRAM
     Route: 042
  4. ENTYVIO [Suspect]
     Active Substance: VEDOLIZUMAB
     Indication: Crohn^s disease
     Dosage: 300 MILLIGRAM
     Route: 042
  5. ENTYVIO [Suspect]
     Active Substance: VEDOLIZUMAB
     Indication: Crohn^s disease
     Dosage: 300 MILLIGRAM
     Route: 042
  6. ENTYVIO [Suspect]
     Active Substance: VEDOLIZUMAB
     Indication: Crohn^s disease
     Dosage: 300 MILLIGRAM
     Route: 042
  7. ENTYVIO [Suspect]
     Active Substance: VEDOLIZUMAB
     Indication: Crohn^s disease
     Dosage: 300 MILLIGRAM
     Route: 042

REACTIONS (26)
  - Cardiac arrest [Unknown]
  - Fatigue [Unknown]
  - Diarrhoea [Unknown]
  - Crohn^s disease [Unknown]
  - Lower respiratory tract infection [Unknown]
  - Rhinorrhoea [Unknown]
  - Nasopharyngitis [Unknown]
  - Arthralgia [Unknown]
  - Spinal compression fracture [Unknown]
  - Retinal vascular thrombosis [Unknown]
  - Myocardial infarction [Unknown]
  - Anxiety [Unknown]
  - Urinary tract infection [Unknown]
  - Frequent bowel movements [Unknown]
  - Back pain [Unknown]
  - Inappropriate schedule of product administration [Unknown]
  - Mobility decreased [Unknown]
  - Decreased appetite [Unknown]
  - Herpes zoster [Recovered/Resolved]
  - Malaise [Unknown]
  - Medical device site pain [Unknown]
  - Oral pain [Unknown]
  - Blood pressure decreased [Unknown]
  - Dysgeusia [Unknown]
  - Sinus disorder [Unknown]
  - Nervousness [Unknown]

NARRATIVE: CASE EVENT DATE: 20210216
